FAERS Safety Report 7930205-4 (Version None)
Quarter: 2011Q4

REPORT INFORMATION
  Report Type: 
  Country: None (occurrence: None)
  Receive Date: 20111121
  Receipt Date: 20111108
  Transmission Date: 20120403
  Serious: Yes (Hospitalization)
  Sender: FDA-Public Use
  Company Number: US-NOVOPROD-334245

PATIENT
  Sex: Male
  Weight: 99.7 kg

DRUGS (12)
  1. INSULATARD FLEXPEN HM(GE) [Suspect]
     Indication: TYPE 1 DIABETES MELLITUS
     Dosage: 28 IU, QD (MAIN TRIAL)
     Route: 058
     Dates: start: 20100927, end: 20101005
  2. NOVORAPID FLEXPEN [Suspect]
     Indication: TYPE 1 DIABETES MELLITUS
     Dosage: 80 IU, QD (MAIN TRIAL)
     Route: 058
     Dates: start: 20090930, end: 20101005
  3. NOVORAPID FLEXPEN [Suspect]
     Dosage: SLIDING SCALE
     Route: 058
  4. HUMULIN                            /00646001/ [Concomitant]
  5. IDEG FLEXPEN [Suspect]
     Dosage: 30 IU, QD
     Route: 058
     Dates: start: 20110830
  6. LIPITOR [Concomitant]
     Indication: HYPERLIPIDAEMIA
     Dosage: 20 MG, QD
     Route: 048
     Dates: start: 20080901
  7. IDEG FLEXPEN [Suspect]
     Indication: TYPE 1 DIABETES MELLITUS
     Dosage: 28 IU, QD (MAIN TRIAL)
     Route: 058
     Dates: start: 20090930, end: 20100926
  8. L-LYSINE                           /00919901/ [Concomitant]
     Indication: SUPPLEMENTATION THERAPY
     Dosage: 600 MG, QD
     Route: 048
     Dates: start: 20070701
  9. MULTIVITAMIN                       /00097801/ [Concomitant]
     Indication: SUPPLEMENTATION THERAPY
     Dosage: 1 TAB, QD
     Route: 048
     Dates: start: 19990101
  10. ASACOL [Concomitant]
     Indication: PRODUCT USED FOR UNKNOWN INDICATION
  11. IDEG FLEXPEN [Suspect]
     Dosage: 38 IU, QD
     Route: 058
     Dates: start: 20101006
  12. NOVORAPID FLEXPEN [Suspect]
     Dosage: 48 IU, QD
     Route: 058
     Dates: start: 20101006

REACTIONS (2)
  - HYPOGLYCAEMIC SEIZURE [None]
  - HYPOGLYCAEMIA [None]
